FAERS Safety Report 9340730 (Version 1)
Quarter: 2013Q2

REPORT INFORMATION
  Report Type: Spontaneous
  Country: CN (occurrence: CN)
  Receive Date: 20130610
  Receipt Date: 20130610
  Transmission Date: 20140414
  Serious: Yes (Hospitalization)
  Sender: FDA-Public Use
  Company Number: CN-GLAXOSMITHKLINE-B0898178A

PATIENT
  Age: 51 Year
  Sex: Male

DRUGS (1)
  1. CEFUROXIME [Suspect]
     Indication: TONSILLITIS
     Dosage: 1.5G PER DAY
     Route: 042
     Dates: start: 20120312, end: 20120312

REACTIONS (4)
  - Rash pruritic [Recovering/Resolving]
  - Rash macular [Recovering/Resolving]
  - Burning sensation [Recovering/Resolving]
  - Dermatitis [Recovering/Resolving]
